FAERS Safety Report 7416256-7 (Version None)
Quarter: 2011Q2

REPORT INFORMATION
  Report Type: 
  Country: None (occurrence: None)
  Receive Date: 20110414
  Receipt Date: 20110411
  Transmission Date: 20111010
  Serious: Yes (Other)
  Sender: FDA-Public Use
  Company Number: US-PFIZER INC-2011079856

PATIENT
  Sex: Female
  Weight: 63.039 kg

DRUGS (6)
  1. ZOLOFT [Suspect]
     Indication: BIPOLAR DISORDER
     Dosage: 50 MG, 1X/DAY
     Route: 048
     Dates: start: 20090316
  2. DEPAKOTE [Concomitant]
     Dosage: 500 MG, UNK
  3. EFFEXOR [Suspect]
     Indication: BIPOLAR DISORDER
     Dosage: 75 MG, 1X/DAY
     Route: 048
     Dates: start: 20101129, end: 20101216
  4. WELLBUTRIN [Concomitant]
     Dosage: 100 MG, UNK
  5. PRENATAL VITAMINS [Concomitant]
     Dosage: UNK
  6. ZOLOFT [Suspect]
     Dosage: 100 MG, 1X/DAY
     Dates: end: 20100728

REACTIONS (1)
  - LOSS OF CONSCIOUSNESS [None]
